FAERS Safety Report 6140291-2 (Version None)
Quarter: 2009Q2

REPORT INFORMATION
  Report Type: 
  Country: None (occurrence: None)
  Receive Date: 20090401
  Receipt Date: 20090323
  Transmission Date: 20091009
  Serious: Yes (Hospitalization)
  Sender: FDA-Public Use
  Company Number: PHHY2009FR11030

PATIENT
  Age: 85 Year
  Sex: Male

DRUGS (4)
  1. TAREG [Suspect]
     Indication: HYPERTENSION
     Dosage: 160 MG, QD
     Route: 048
     Dates: end: 20081231
  2. OGAST [Suspect]
     Indication: GASTRIC ULCER
     Dosage: 1 DF, QD
     Route: 048
     Dates: end: 20081217
  3. DECAPEPTYL                              /SCH/ [Concomitant]
     Indication: PROSTATE CANCER
     Dosage: 1 DF EVERY 3 MONTHS
     Route: 030
     Dates: start: 20060101
  4. AMLODIPINE BESYLATE [Concomitant]
     Indication: HYPERTENSION
     Dosage: 5 MG, BID
     Route: 048

REACTIONS (12)
  - ANAEMIA [None]
  - CONDITION AGGRAVATED [None]
  - DERMATITIS EXFOLIATIVE [None]
  - ECZEMA [None]
  - ERYTHEMA [None]
  - LICHENOID KERATOSIS [None]
  - LYMPHOMA [None]
  - PRURITUS [None]
  - RASH [None]
  - RENAL FAILURE [None]
  - SKIN DISORDER [None]
  - VITAMIN B12 DEFICIENCY [None]
